FAERS Safety Report 9299927 (Version 1)
Quarter: 2012Q4

REPORT INFORMATION
  Report Type: Spontaneous
  Country: US (occurrence: None)
  Receive Date: 20121120
  Receipt Date: 20121120
  Transmission Date: 20130627
  Serious: Yes (Other)
  Sender: FDA-Public Use
  Company Number: TPA2012A00038

PATIENT
  Age: 69 Year
  Sex: Male

DRUGS (4)
  1. ACTOS (PIOGLITAZONE HYDROCHLORIDE) [Suspect]
     Indication: TYPE 2 DIABETES MELLITUS
  2. METFORMIN (METFORMIN) [Concomitant]
  3. PREVACID (LANSOPRAZOLE) [Concomitant]
  4. BUSPIRONE (BUSPIRONE) [Concomitant]

REACTIONS (1)
  - Bladder transitional cell carcinoma [None]
